FAERS Safety Report 4778206-1 (Version None)
Quarter: 2005Q3

REPORT INFORMATION
  Report Type: 
  Country: None (occurrence: None)
  Receive Date: 20050923
  Receipt Date: 20050923
  Transmission Date: 20060218
  Serious: Yes (Hospitalization)
  Sender: FDA-Public Use
  Company Number: None

PATIENT
  Age: 68 Year
  Sex: Female
  Weight: 102 kg

DRUGS (2)
  1. DEPODUR [Suspect]
     Indication: ABDOMINAL OPERATION
     Dosage: 15MG   X1   EPIDURAL
     Route: 008
     Dates: start: 20050630, end: 20050630
  2. DEPODUR [Suspect]
     Indication: PROCEDURAL PAIN
     Dosage: 15MG   X1   EPIDURAL
     Route: 008
     Dates: start: 20050630, end: 20050630

REACTIONS (2)
  - RESPIRATORY ACIDOSIS [None]
  - RESPIRATORY DEPRESSION [None]
